FAERS Safety Report 18682571 (Version 1)
Quarter: 2020Q4

REPORT INFORMATION
  Report Type: Other
  Country: CA (occurrence: CA)
  Receive Date: 20201229
  Receipt Date: 20201229
  Transmission Date: 20210114
  Serious: Yes (Other)
  Sender: FDA-Public Use
  Company Number: CA-CELLTRION INC.-2020CA034591

PATIENT

DRUGS (18)
  1. RITUXIMAB (UNKNOWN) [Suspect]
     Active Substance: RITUXIMAB
     Indication: RHEUMATOID ARTHRITIS
     Dosage: 1000 MG
     Route: 042
  2. ACETYLSALICYLIC ACID [Concomitant]
     Active Substance: ASPIRIN
  3. PREGABALIN. [Concomitant]
     Active Substance: PREGABALIN
  4. ACTEMRA [Suspect]
     Active Substance: TOCILIZUMAB
     Indication: RHEUMATOID ARTHRITIS
     Dosage: 162 MG, 1 EVERY 2 WEEKS
     Route: 058
  5. HYDROMORPHONE [Concomitant]
     Active Substance: HYDROMORPHONE
  6. NIZORAL [Concomitant]
     Active Substance: KETOCONAZOLE
  7. VOLTAREN [DICLOFENAC] [Concomitant]
     Active Substance: DICLOFENAC SODIUM
     Route: 065
  8. ACETAMINOPHEN. [Concomitant]
     Active Substance: ACETAMINOPHEN
  9. MUPIROCIN. [Concomitant]
     Active Substance: MUPIROCIN
  10. OXAZEPAM. [Concomitant]
     Active Substance: OXAZEPAM
  11. FENTANYL. [Concomitant]
     Active Substance: FENTANYL
     Route: 065
  12. PROLIA [Concomitant]
     Active Substance: DENOSUMAB
  13. ATORVASTATIN [Concomitant]
     Active Substance: ATORVASTATIN
  14. PREDNISONE. [Concomitant]
     Active Substance: PREDNISONE
  15. SYNTHROID [Concomitant]
     Active Substance: LEVOTHYROXINE SODIUM
  16. CELECOXIB. [Concomitant]
     Active Substance: CELECOXIB
  17. EURO D [Concomitant]
  18. PANTOPRAZOLE [Concomitant]
     Active Substance: PANTOPRAZOLE

REACTIONS (2)
  - Ankle deformity [Unknown]
  - Bacterial infection [Unknown]
